FAERS Safety Report 8443517-5 (Version None)
Quarter: 2012Q2

REPORT INFORMATION
  Report Type: 
  Country: None (occurrence: None)
  Receive Date: 20120618
  Receipt Date: 20120613
  Transmission Date: 20120825
  Serious: No
  Sender: FDA-Public Use
  Company Number: US-PFIZER INC-2012142223

PATIENT
  Sex: Male

DRUGS (1)
  1. SUTENT [Suspect]
     Indication: RENAL CANCER
     Dosage: 50 MG, UNK
     Dates: start: 20120326

REACTIONS (5)
  - GLOSSODYNIA [None]
  - EYE SWELLING [None]
  - ORAL PAIN [None]
  - DYSGEUSIA [None]
  - LACRIMATION INCREASED [None]
